FAERS Safety Report 12192768 (Version 1)
Quarter: 2016Q1

REPORT INFORMATION
  Report Type: Spontaneous
  Country: US (occurrence: US)
  Receive Date: 20160318
  Receipt Date: 20160318
  Transmission Date: 20160526
  Serious: No
  Sender: FDA-Public Use
  Company Number: US-BAXALTA-2016BLT001731

PATIENT
  Age: 57 Year
  Sex: Female
  Weight: 133.33 kg

DRUGS (9)
  1. GAMMAGARD LIQUID [Suspect]
     Active Substance: HUMAN IMMUNOGLOBULIN G
     Dosage: 12 G, 1X A WEEK, 2X 1 G VIAL
     Route: 058
     Dates: start: 20160310, end: 20160310
  2. GAMMAGARD LIQUID [Suspect]
     Active Substance: HUMAN IMMUNOGLOBULIN G
     Dosage: 12 G, 1X A WEEK, 2X 1 G VIAL
     Route: 058
     Dates: start: 20160301, end: 20160301
  3. GAMMAGARD LIQUID [Suspect]
     Active Substance: HUMAN IMMUNOGLOBULIN G
     Dosage: UNK
     Dates: start: 201309
  4. GAMMAGARD LIQUID [Suspect]
     Active Substance: HUMAN IMMUNOGLOBULIN G
     Indication: IMMUNODEFICIENCY COMMON VARIABLE
     Dosage: 12 G, 1X A WEEK, 10 G VIAL
     Route: 058
     Dates: start: 20160310, end: 20160310
  5. GAMMAGARD LIQUID [Suspect]
     Active Substance: HUMAN IMMUNOGLOBULIN G
     Dosage: 12 G, 1X A WEEK, 10 G VIAL
     Route: 058
     Dates: start: 20160301, end: 20160301
  6. GAMMAGARD LIQUID [Suspect]
     Active Substance: HUMAN IMMUNOGLOBULIN G
     Dosage: 12 G, 1X A WEEK, 10 G VIAL
     Route: 058
     Dates: start: 20160212, end: 20160212
  7. GAMMAGARD LIQUID [Suspect]
     Active Substance: HUMAN IMMUNOGLOBULIN G
     Dosage: 12 G, 1X A WEEK, 2X 1 G VIAL
     Route: 058
     Dates: start: 20160212, end: 20160212
  8. GAMMAGARD LIQUID [Suspect]
     Active Substance: HUMAN IMMUNOGLOBULIN G
     Dosage: 12 G, 1X A WEEK, 2X 1 G VIAL
     Route: 058
     Dates: start: 20160221, end: 20160221
  9. GAMMAGARD LIQUID [Suspect]
     Active Substance: HUMAN IMMUNOGLOBULIN G
     Dosage: 12 G, 1X A WEEK, 10 G VIAL
     Route: 058
     Dates: start: 20160221, end: 20160221

REACTIONS (2)
  - Headache [Unknown]
  - White blood cell count abnormal [Recovering/Resolving]

NARRATIVE: CASE EVENT DATE: 20160310
